FAERS Safety Report 8540723-6 (Version None)
Quarter: 2012Q3

REPORT INFORMATION
  Report Type: 
  Country: None (occurrence: None)
  Receive Date: 20120726
  Receipt Date: 20120716
  Transmission Date: 20120928
  Serious: Yes (Hospitalization)
  Sender: FDA-Public Use
  Company Number: DE-ABBOTT-12P-062-0956878-01

PATIENT
  Age: 15 Year
  Sex: Female

DRUGS (3)
  1. LEFLUNOMIDE [Concomitant]
     Indication: JUVENILE ARTHRITIS
     Dates: start: 20101025, end: 20110724
  2. YASMIN [Concomitant]
     Indication: CONTRACEPTION
     Dates: start: 20100801
  3. HUMIRA [Suspect]
     Indication: JUVENILE ARTHRITIS
     Route: 058
     Dates: start: 20101025

REACTIONS (3)
  - FEMUR FRACTURE [None]
  - JOINT DISLOCATION [None]
  - LIGAMENT RUPTURE [None]
